FAERS Safety Report 11621879 (Version 2)
Quarter: 2015Q4

REPORT INFORMATION
  Report Type: Report from Study
  Country: US (occurrence: US)
  Receive Date: 20151013
  Receipt Date: 20151116
  Transmission Date: 20160304
  Serious: Yes (Hospitalization, Other)
  Sender: FDA-Public Use
  Company Number: US-GILEAD-2015-0176061

PATIENT
  Sex: Female

DRUGS (1)
  1. AMBRISENTAN [Suspect]
     Active Substance: AMBRISENTAN
     Indication: PRODUCT USED FOR UNKNOWN INDICATION
     Dosage: 5 MG, QD
     Route: 065
     Dates: start: 20150611

REACTIONS (13)
  - Syncope [Unknown]
  - Haematoma [Unknown]
  - Renal failure [Unknown]
  - Urinary tract infection [Unknown]
  - Chest pain [Unknown]
  - Stress [Unknown]
  - Palpitations [Unknown]
  - Oedema peripheral [Unknown]
  - Dyspnoea [Unknown]
  - Weight decreased [Unknown]
  - Dehydration [Unknown]
  - Cardiac failure [Unknown]
  - Presyncope [Unknown]
